FAERS Safety Report 21706523 (Version 1)
Quarter: 2022Q4

REPORT INFORMATION
  Report Type: Spontaneous
  Country: DE (occurrence: DE)
  Receive Date: 20221209
  Receipt Date: 20221209
  Transmission Date: 20230112
  Serious: Yes (Disabling)
  Sender: FDA-Public Use
  Company Number: DE-ROCHE-3217050

PATIENT
  Age: 67 Year
  Sex: Male

DRUGS (26)
  1. BENDAMUSTINE HYDROCHLORIDE [Suspect]
     Active Substance: BENDAMUSTINE HYDROCHLORIDE
     Indication: Diffuse large B-cell lymphoma
     Dosage: [5TH LINE, P-BR]
     Route: 042
     Dates: start: 20201101, end: 20210101
  2. DEXAMETHASONE [Suspect]
     Active Substance: DEXAMETHASONE
     Indication: Diffuse large B-cell lymphoma
     Dosage: [2ND LINE, R-GDP]
     Route: 065
     Dates: start: 20170801, end: 20170901
  3. GEMCITABINE [Suspect]
     Active Substance: GEMCITABINE
     Indication: Diffuse large B-cell lymphoma
     Dosage: [2ND LINE, R-GDP]
     Route: 065
     Dates: start: 20170801, end: 20170901
  4. CISPLATIN [Suspect]
     Active Substance: CISPLATIN
     Indication: Diffuse large B-cell lymphoma
     Dosage: R-DHAP AND ALLO-SCT] DHAP
     Route: 065
     Dates: start: 20210601, end: 20210730
  5. RITUXIMAB [Suspect]
     Active Substance: RITUXIMAB
     Indication: Diffuse large B-cell lymphoma
     Dosage: [3RD LINE R-ICE]
     Route: 065
     Dates: start: 20170901, end: 20171101
  6. RITUXIMAB [Suspect]
     Active Substance: RITUXIMAB
     Dosage: [4TH LINE, R-ICE]
     Route: 065
     Dates: start: 20200601, end: 20201001
  7. PREDNISONE [Suspect]
     Active Substance: PREDNISONE
     Indication: Diffuse large B-cell lymphoma
     Dosage: [2ND LINE, R-GDP]
     Route: 065
     Dates: start: 20170801, end: 20170901
  8. DOXORUBICIN HYDROCHLORIDE [Suspect]
     Active Substance: DOXORUBICIN HYDROCHLORIDE
     Indication: Diffuse large B-cell lymphoma
     Dosage: [1ST LINE, R-CHOP].
     Route: 065
     Dates: start: 20161001, end: 20170101
  9. PREDNISONE [Suspect]
     Active Substance: PREDNISONE
     Indication: Diffuse large B-cell lymphoma
     Dosage: [1ST LINE, R-CHOP].
     Route: 065
     Dates: start: 20161001, end: 20170101
  10. VINCRISTINE SULFATE [Suspect]
     Active Substance: VINCRISTINE SULFATE
     Indication: Diffuse large B-cell lymphoma
     Dosage: [1ST LINE, R-CHOP].
     Route: 065
     Dates: start: 20161001, end: 20170101
  11. DEXAMETHASONE [Suspect]
     Active Substance: DEXAMETHASONE
     Indication: Diffuse large B-cell lymphoma
     Dosage: R-DHAP AND ALLO-SCT] DHAP
     Route: 065
     Dates: start: 20210601, end: 20210730
  12. RITUXIMAB [Suspect]
     Active Substance: RITUXIMAB
     Indication: Diffuse large B-cell lymphoma
     Dosage: [1ST LINE, R-CHOP]
     Route: 065
     Dates: start: 20161001, end: 20170101
  13. RITUXIMAB [Suspect]
     Active Substance: RITUXIMAB
     Dosage: [2ND LINE, R-GDP]
     Route: 065
     Dates: start: 20170801, end: 20170901
  14. RITUXIMAB [Suspect]
     Active Substance: RITUXIMAB
     Dosage: [3RD LINE R-ICE]
     Route: 065
     Dates: start: 20170901, end: 20171101
  15. RITUXIMAB [Suspect]
     Active Substance: RITUXIMAB
     Dosage: [4TH LINE, R-ICE]
     Route: 065
     Dates: start: 20200601, end: 20201001
  16. RITUXIMAB [Suspect]
     Active Substance: RITUXIMAB
     Dosage: [5TH LINE, P-BR]
     Route: 065
     Dates: start: 20201101, end: 20210101
  17. RITUXIMAB [Suspect]
     Active Substance: RITUXIMAB
     Dosage: [R-DHAP AND ALLO-SCT]
     Route: 065
     Dates: start: 20210601, end: 20210730
  18. POLATUZUMAB VEDOTIN [Suspect]
     Active Substance: POLATUZUMAB VEDOTIN
     Indication: Diffuse large B-cell lymphoma
     Dosage: 5TH LINE, P-BR]
     Route: 065
     Dates: start: 20201101, end: 20210101
  19. CYTARABINE [Suspect]
     Active Substance: CYTARABINE
     Indication: Diffuse large B-cell lymphoma
     Dosage: [R-DHAP AND ALLO-SCT] DHAP
     Route: 065
     Dates: start: 20210601, end: 20210730
  20. CYCLOPHOSPHAMIDE [Suspect]
     Active Substance: CYCLOPHOSPHAMIDE
     Indication: Diffuse large B-cell lymphoma
     Dosage: [1ST LINE, R-CHOP].
     Route: 065
     Dates: start: 20161001, end: 20170101
  21. CARBOPLATIN [Suspect]
     Active Substance: CARBOPLATIN
     Indication: Diffuse large B-cell lymphoma
     Dosage: [3RD LINE R-ICE]
     Route: 065
     Dates: start: 20170901, end: 20171101
  22. CARBOPLATIN [Suspect]
     Active Substance: CARBOPLATIN
     Dosage: [4TH LINE, R-ICE]
     Route: 065
     Dates: start: 20200601, end: 20201001
  23. ETOPOSIDE [Suspect]
     Active Substance: ETOPOSIDE
     Indication: Diffuse large B-cell lymphoma
     Dosage: [3RD LINE R-ICE]
     Route: 065
     Dates: start: 20170901, end: 20171101
  24. ETOPOSIDE [Suspect]
     Active Substance: ETOPOSIDE
     Dosage: [4TH LINE, R-ICE]
     Route: 065
     Dates: start: 20200601, end: 20201001
  25. IFOSFAMIDE [Suspect]
     Active Substance: IFOSFAMIDE
     Indication: Diffuse large B-cell lymphoma
     Dosage: [3RD LINE R-ICE]
     Route: 065
     Dates: start: 20170901, end: 20171101
  26. IFOSFAMIDE [Suspect]
     Active Substance: IFOSFAMIDE
     Dosage: [4TH LINE, R-ICE]
     Route: 065
     Dates: start: 20200601, end: 20201001

REACTIONS (4)
  - Osteolysis [Not Recovered/Not Resolved]
  - Resorption bone increased [Not Recovered/Not Resolved]
  - Ilium fracture [Not Recovered/Not Resolved]
  - Off label use [Unknown]

NARRATIVE: CASE EVENT DATE: 20201101
